FAERS Safety Report 5219069-X (Version None)
Quarter: 2007Q1

REPORT INFORMATION
  Report Type: 
  Country: None (occurrence: None)
  Receive Date: 20070124
  Receipt Date: 20070124
  Transmission Date: 20070707
  Serious: Yes (Hospitalization)
  Sender: FDA-Public Use
  Company Number: None

PATIENT
  Sex: Female
  Weight: 73.6 kg

DRUGS (1)
  1. TEMOZOLOMIDE [Suspect]
     Dosage: 1750 MG

REACTIONS (2)
  - GASTROENTERITIS [None]
  - HIATUS HERNIA [None]
